FAERS Safety Report 4277732-1 (Version None)
Quarter: 2004Q1

REPORT INFORMATION
  Report Type: 
  Country: None (occurrence: None)
  Receive Date: 20040121
  Receipt Date: 20040105
  Transmission Date: 20041129
  Serious: Yes (Hospitalization, Other)
  Sender: FDA-Public Use
  Company Number: 2003EU005480

PATIENT
  Age: 23 Year
  Sex: Female
  Weight: 53 kg

DRUGS (4)
  1. PROGRAF [Suspect]
     Indication: HEART TRANSPLANT
     Dosage: 3.5 MG UID/QD, ORAL
     Route: 048
  2. IMUREL [Concomitant]
  3. NEORAL [Concomitant]
  4. LUTERAN (CHLORMADINONE ACETATE) [Concomitant]

REACTIONS (5)
  - ABORTION SPONTANEOUS [None]
  - COMPLICATIONS OF MATERNAL EXPOSURE TO THERAPEUTIC DRUGS [None]
  - DRUG LEVEL BELOW THERAPEUTIC [None]
  - MATERNAL DRUGS AFFECTING FOETUS [None]
  - PREGNANCY [None]
